FAERS Safety Report 15390615 (Version 1)
Quarter: 2018Q3

REPORT INFORMATION
  Report Type: Spontaneous
  Country: US (occurrence: US)
  Receive Date: 20180909
  Receipt Date: 20180909
  Transmission Date: 20181010
  Serious: Yes (Other)
  Sender: FDA-Public Use
  Company Number: None

PATIENT
  Age: 61 Year
  Sex: Female
  Weight: 56.25 kg

DRUGS (3)
  1. FEMRING [Suspect]
     Active Substance: ESTRADIOL ACETATE
     Indication: MENOPAUSE
     Dosage: ?          QUANTITY:1 RING;OTHER FREQUENCY:3 MONTHS;?
     Route: 067
     Dates: start: 20120601, end: 20160201
  2. ESTRADIOL TRANSDERMAL SYSTEM [Suspect]
     Active Substance: ESTRADIOL
     Indication: MENOPAUSE
     Dosage: ?          QUANTITY:1 PATCH(ES);OTHER FREQUENCY:TWICE WEEKLY;?
     Route: 062
     Dates: start: 20160601, end: 20170321
  3. MULTI VITAMIN [Concomitant]
     Active Substance: VITAMINS

REACTIONS (2)
  - Uterine cancer [None]
  - Invasive ductal breast carcinoma [None]

NARRATIVE: CASE EVENT DATE: 20170321
